FAERS Safety Report 4932082-2 (Version None)
Quarter: 2006Q1

REPORT INFORMATION
  Report Type: 
  Country: None (occurrence: None)
  Receive Date: 20060303
  Receipt Date: 20051025
  Transmission Date: 20060701
  Serious: Yes (Death, Life-Threatening, Hospitalization)
  Sender: FDA-Public Use
  Company Number: JP-ROCHE-422599

PATIENT
  Age: 34 Year
  Sex: Male
  Weight: 61.8 kg

DRUGS (30)
  1. TOCILIZUMAB [Suspect]
     Indication: CASTLEMAN'S DISEASE
     Route: 041
     Dates: start: 20050825, end: 20050907
  2. TOCILIZUMAB [Suspect]
     Dosage: DOSING INTERVAL DECREASED (NOT SPECIFIED).
     Route: 041
     Dates: start: 20050908
  3. KLARICID [Suspect]
     Indication: DRUG USE FOR UNKNOWN INDICATION
     Route: 048
     Dates: start: 20050908, end: 20050914
  4. KLARICID [Suspect]
     Route: 048
     Dates: start: 20050929, end: 20051003
  5. KLARICID [Suspect]
     Route: 048
     Dates: start: 20051013, end: 20051018
  6. ISCOTIN [Suspect]
     Indication: DISSEMINATED TUBERCULOSIS
     Route: 048
     Dates: start: 20051027
  7. ETHAMBUTOL HYDROCHLORIDE [Suspect]
     Indication: DISSEMINATED TUBERCULOSIS
     Dosage: DRUG NAME REPORTED AS ^EBUTOL^.
     Route: 048
     Dates: start: 20051027
  8. RIFADIN [Suspect]
     Indication: DISSEMINATED TUBERCULOSIS
     Route: 048
     Dates: start: 20051027
  9. PYRAZINAMIDE [Suspect]
     Indication: DISSEMINATED TUBERCULOSIS
     Dosage: DRUG NAME REPORTED AS ^PYRAMIDE^.
     Route: 048
     Dates: start: 20051108
  10. PREDONINE [Concomitant]
     Dosage: 10MG DAILY UNTIL 15 SEP 05, 7.5MG DAILY FROM 16 SEP 05 ONWARDS.
     Route: 048
  11. GLAKAY [Concomitant]
     Route: 048
  12. LOXONIN [Concomitant]
     Route: 048
  13. MUCOSTA [Concomitant]
     Route: 048
     Dates: end: 20051013
  14. KELNAC [Concomitant]
     Route: 048
     Dates: end: 20051013
  15. HALCION [Concomitant]
     Route: 048
     Dates: start: 20051221
  16. DESFERAL [Concomitant]
     Dosage: ^DURING BLOOD TRANSFUSION.^
     Route: 042
  17. FLURBIPROFEN [Concomitant]
     Dosage: DOSE FORM REPORTED AS ^TAPE^.
     Route: 061
     Dates: start: 20050530
  18. ZANTAC [Concomitant]
     Route: 048
     Dates: start: 20050817
  19. ZYLORIC [Concomitant]
     Route: 048
     Dates: start: 20050817
  20. POLARAMINE [Concomitant]
     Route: 048
     Dates: start: 20050825
  21. DALACIN [Concomitant]
     Route: 042
     Dates: start: 20050908, end: 20050908
  22. GRAN [Concomitant]
     Dosage: GIVEN ON 22 SEPTEMBER, 2005, 20 OCTOBER, 2005, AND 27 OCTOBER TO 8 NOVEMBER, 2005.
     Route: 042
     Dates: start: 20050922, end: 20051108
  23. PL [Concomitant]
     Route: 048
     Dates: start: 20051013, end: 20051018
  24. ACETAMINOPHEN [Concomitant]
     Dosage: P.R.N.
     Route: 048
     Dates: start: 20051027
  25. NEUTROGIN [Concomitant]
     Route: 042
     Dates: start: 20051115
  26. SOSEGON [Concomitant]
     Route: 042
     Dates: start: 20051212, end: 20051218
  27. GASTER [Concomitant]
     Route: 048
     Dates: start: 20051221
  28. HYPEN [Concomitant]
     Route: 048
     Dates: start: 20060113
  29. PENTAZOCINE LACTATE [Concomitant]
     Route: 048
     Dates: start: 20060113
  30. GATIFLO [Concomitant]
     Route: 048
     Dates: start: 20060119

REACTIONS (40)
  - ACIDOSIS [None]
  - ALPHA HAEMOLYTIC STREPTOCOCCAL INFECTION [None]
  - BACTERAEMIA [None]
  - BRAIN ABSCESS [None]
  - CANDIDIASIS [None]
  - CEREBRAL HAEMORRHAGE [None]
  - DEHYDRATION [None]
  - DEPRESSED LEVEL OF CONSCIOUSNESS [None]
  - DISSEMINATED TUBERCULOSIS [None]
  - ENDOCARDITIS BACTERIAL [None]
  - ENTEROCOLITIS [None]
  - FATIGUE [None]
  - GALLBLADDER DISORDER [None]
  - HAEMOCHROMATOSIS [None]
  - HAEMOSIDEROSIS [None]
  - HALLUCINATION [None]
  - HEPATOMEGALY [None]
  - HYPERURICAEMIA [None]
  - LIVER ABSCESS [None]
  - LIVER DISORDER [None]
  - PANCREATIC ABSCESS [None]
  - PNEUMONIA [None]
  - PSEUDOMONAS INFECTION [None]
  - RENAL ABSCESS [None]
  - RENAL DISORDER [None]
  - RHINITIS [None]
  - SEPSIS [None]
  - SEPTIC EMBOLUS [None]
  - SEPTIC SHOCK [None]
  - SPLENIC ABSCESS [None]
  - SPLENIC INFARCTION [None]
  - SPLENOMEGALY [None]
  - SPUTUM CULTURE POSITIVE [None]
  - STAPHYLOCOCCAL INFECTION [None]
  - STREPTOCOCCAL INFECTION [None]
  - SUBARACHNOID HAEMORRHAGE [None]
  - SUBCUTANEOUS ABSCESS [None]
  - UPPER RESPIRATORY TRACT INFLAMMATION [None]
  - VOMITING [None]
  - WHITE BLOOD CELL COUNT DECREASED [None]
